FAERS Safety Report 4342234-0 (Version None)
Quarter: 2004Q1

REPORT INFORMATION
  Report Type: 
  Country: None (occurrence: None)
  Receive Date: 20040329
  Receipt Date: 20031118
  Transmission Date: 20041129
  Serious: No
  Sender: FDA-Public Use
  Company Number: USA031152801

PATIENT
  Age: 45 Year
  Sex: Male
  Weight: 91 kg

DRUGS (5)
  1. STRATTERA [Suspect]
     Dosage: 25 MG/DAY
     Dates: start: 20030501
  2. ARICEPT [Concomitant]
  3. BUSPAR [Concomitant]
  4. WELLBUTRIN [Concomitant]
  5. RISPERDAL [Concomitant]

REACTIONS (2)
  - MUSCULOSKELETAL STIFFNESS [None]
  - NECK PAIN [None]
